FAERS Safety Report 6552037-4 (Version None)
Quarter: 2010Q1

REPORT INFORMATION
  Report Type: 
  Country: None (occurrence: None)
  Receive Date: 20100126
  Receipt Date: 20100119
  Transmission Date: 20100710
  Serious: Yes (Other)
  Sender: FDA-Public Use
  Company Number: FR-ROCHE-675111

PATIENT
  Age: 67 Year
  Sex: Male
  Weight: 95 kg

DRUGS (5)
  1. RIVOTRIL [Suspect]
     Indication: DRUG USE FOR UNKNOWN INDICATION
     Dosage: FORM: VIAL; DOSE: 60-70 DROPS DAILY
     Route: 065
  2. RIVOTRIL [Suspect]
     Route: 065
  3. LAROXYL [Suspect]
     Route: 048
     Dates: start: 20091031, end: 20091107
  4. ACTISKENAN [Concomitant]
  5. METHOCARBAMOL [Concomitant]

REACTIONS (7)
  - AMNESIA [None]
  - BALANCE DISORDER [None]
  - DISORIENTATION [None]
  - MENTAL DISORDER [None]
  - SENSORY LOSS [None]
  - TREMOR [None]
  - WRONG DRUG ADMINISTERED [None]
